FAERS Safety Report 14046833 (Version 1)
Quarter: 2017Q4

REPORT INFORMATION
  Report Type: Spontaneous
  Country: US (occurrence: US)
  Receive Date: 20171005
  Receipt Date: 20171005
  Transmission Date: 20180321
  Serious: No
  Sender: FDA-Public Use
  Company Number: US-BAYER-2017-172738

PATIENT
  Age: 77 Year
  Sex: Female
  Weight: 38 kg

DRUGS (6)
  1. BUDESONIDE. [Concomitant]
     Active Substance: BUDESONIDE
  2. BROVANA [Concomitant]
     Active Substance: ARFORMOTEROL TARTRATE
  3. PREDNISONE. [Concomitant]
     Active Substance: PREDNISONE
  4. ALBUTEROL. [Concomitant]
     Active Substance: ALBUTEROL
  5. CORTICOSTEROID NOS [Concomitant]
     Active Substance: CORTICOSTEROID NOS
  6. ALEVE PM [Suspect]
     Active Substance: DIPHENHYDRAMINE HYDROCHLORIDE\NAPROXEN SODIUM
     Indication: INSOMNIA
     Dosage: 1 DF, HS WITH SOME FOOD (BOTTLE COUNT 20CT)
     Route: 048

REACTIONS (4)
  - Product packaging quantity issue [None]
  - Poor quality drug administered [Recovered/Resolved]
  - Intentional product use issue [Unknown]
  - Product colour issue [Recovered/Resolved]

NARRATIVE: CASE EVENT DATE: 201703
